FAERS Safety Report 22082941 (Version 1)
Quarter: 2023Q1

REPORT INFORMATION
  Report Type: Spontaneous
  Country: US (occurrence: US)
  Receive Date: 20230310
  Receipt Date: 20230310
  Transmission Date: 20230417
  Serious: No
  Sender: FDA-Public Use
  Company Number: US-JNJFOC-20230310209

PATIENT
  Age: 5 Decade
  Sex: Female
  Weight: 123.49 kg

DRUGS (3)
  1. XARELTO [Suspect]
     Active Substance: RIVAROXABAN
     Indication: Pulmonary embolism
     Route: 048
     Dates: start: 2020
  2. IRON [Suspect]
     Active Substance: IRON
     Indication: Mineral supplementation
     Dosage: FOR 3 DAYS
     Route: 065
     Dates: start: 202301, end: 2023
  3. IRON [Suspect]
     Active Substance: IRON
     Dosage: FOR 2 DAYS
     Route: 065
     Dates: start: 202302, end: 2023

REACTIONS (6)
  - Blood glucose decreased [Not Recovered/Not Resolved]
  - Heavy menstrual bleeding [Unknown]
  - Coagulopathy [Unknown]
  - Energy increased [Unknown]
  - Inappropriate schedule of product administration [Unknown]
  - Somnolence [Unknown]

NARRATIVE: CASE EVENT DATE: 20220101
